FAERS Safety Report 7326578-6 (Version None)
Quarter: 2011Q1

REPORT INFORMATION
  Report Type: 
  Country: None (occurrence: None)
  Receive Date: 20110218
  Receipt Date: 20110208
  Transmission Date: 20110831
  Serious: Yes (Life-Threatening, Hospitalization)
  Sender: FDA-Public Use
  Company Number: 2011000652

PATIENT
  Sex: Male

DRUGS (13)
  1. COMBIVENT [Concomitant]
  2. DOCETAXEL [Suspect]
     Indication: LUNG ADENOCARCINOMA
     Dosage: (105 MG,QD),INTRAVENOUS
     Route: 042
     Dates: start: 20100818, end: 20101020
  3. CARBOPLATIN [Suspect]
     Indication: LUNG ADENOCARCINOMA
     Dosage: (384 MG,QD),INTRAVENOUS
     Route: 042
     Dates: start: 20100818, end: 20101020
  4. LOPRESSOR [Concomitant]
  5. VERAMYST [Concomitant]
  6. VICODIN [Concomitant]
  7. BEVACIZUMAB [Suspect]
     Indication: LUNG ADENOCARCINOMA
     Dosage: (940 MG,QD),INTRAVENOUS
     Route: 042
     Dates: start: 20100818
  8. MEGACE [Concomitant]
  9. MULTI-VITAMIN [Concomitant]
  10. MIRTAZAPINE [Concomitant]
  11. FERROUS SULFATE TAB [Concomitant]
  12. ERLOTINIB(ERLOTINIB) (TABLET) (ERLOTINIB) [Suspect]
     Indication: LUNG ADENOCARCINOMA
     Dosage: (150 MG,QD),ORAL
     Route: 048
     Dates: start: 20101110, end: 20101117
  13. OMEPRAZOLE [Concomitant]

REACTIONS (5)
  - PNEUMOTHORAX [None]
  - CONFUSIONAL STATE [None]
  - METASTASES TO LYMPH NODES [None]
  - SINUS TACHYCARDIA [None]
  - BRONCHIAL FISTULA [None]
